FAERS Safety Report 5999745-1 (Version None)
Quarter: 2008Q4

REPORT INFORMATION
  Report Type: 
  Country: None (occurrence: None)
  Receive Date: 20081215
  Receipt Date: 20081202
  Transmission Date: 20090506
  Serious: Yes (Other)
  Sender: FDA-Public Use
  Company Number: US-ROCHE-542014

PATIENT
  Sex: Female
  Weight: 68 kg

DRUGS (4)
  1. CAPECITABINE [Suspect]
     Indication: BREAST CANCER
     Dosage: PATIENT REPORTED HAD RECEIVED FOUR CYCLES OF THERAPY. FREQUENCY: 10 DAYS ON AND 11 DAYS OFF
     Route: 048
     Dates: start: 20070102
  2. SYNTHROID [Concomitant]
     Indication: HYPOTHYROIDISM
  3. COUMADIN [Concomitant]
  4. M.V.I. [Concomitant]

REACTIONS (7)
  - BURSITIS [None]
  - DISEASE PROGRESSION [None]
  - DRUG WITHDRAWAL SYNDROME [None]
  - HEART RATE IRREGULAR [None]
  - INSOMNIA [None]
  - MANIA [None]
  - MUSCLE SPASMS [None]
